FAERS Safety Report 9538582 (Version 1)
Quarter: 2013Q2

REPORT INFORMATION
  Report Type: Spontaneous
  Country: US (occurrence: None)
  Receive Date: 20130517
  Receipt Date: 20130517
  Transmission Date: 20140414
  Serious: No
  Sender: FDA-Public Use
  Company Number: 1000043335

PATIENT
  Age: 67 Year
  Sex: Male

DRUGS (8)
  1. VIIBRYD (VILAZODONE HYDROCHLORIDE) (10 MILLIGRAM, TABLETS) [Suspect]
     Indication: DEPRESSION
     Route: 048
     Dates: start: 201211, end: 2012
  2. VIIBRYD (VILAZODONE HYDROCHLORIDE) (10 MILLIGRAM, TABLETS) [Suspect]
     Indication: ANXIETY
     Route: 048
     Dates: start: 201211, end: 2012
  3. VIIBRYD (VILAZODONE HYDROCHLORIDE) (40 MILLIGRAM, TABLETS) [Suspect]
     Indication: DEPRESSION
     Route: 048
     Dates: start: 2012, end: 201302
  4. VIIBRYD (VILAZODONE HYDROCHLORIDE) (40 MILLIGRAM, TABLETS) [Suspect]
     Indication: ANXIETY
     Route: 048
     Dates: start: 2012, end: 201302
  5. ALPRAZOLAM (ALPRAZOLAM) [Concomitant]
  6. ATENOLOL (ATENOLOL) [Concomitant]
  7. TAMSULOSIN (TAMSULOSIN) [Concomitant]
  8. ZOCOR (SIMVASTATIN) (SIMVASTATIN) [Concomitant]

REACTIONS (5)
  - Drug ineffective [None]
  - Anxiety [None]
  - Bradyphrenia [None]
  - Dizziness [None]
  - Abdominal discomfort [None]
